FAERS Safety Report 7833383-0 (Version None)
Quarter: 2011Q4

REPORT INFORMATION
  Report Type: 
  Country: None (occurrence: None)
  Receive Date: 20111024
  Receipt Date: 20111018
  Transmission Date: 20120403
  Serious: No
  Sender: FDA-Public Use
  Company Number: US-PFIZER INC-2011250313

PATIENT
  Sex: Female

DRUGS (3)
  1. LYRICA [Suspect]
     Dosage: 150 MG, 2X/DAY
  2. LYRICA [Suspect]
     Dosage: 150 MG, UNK
  3. LYRICA [Suspect]
     Dosage: 20 MG, THROUGHOUT THE DAY

REACTIONS (4)
  - SKIN BURNING SENSATION [None]
  - PRURITUS [None]
  - PIGMENTATION DISORDER [None]
  - RASH ERYTHEMATOUS [None]
